FAERS Safety Report 19737992 (Version 1)
Quarter: 2021Q3

REPORT INFORMATION
  Report Type: Spontaneous
  Country: NO (occurrence: NO)
  Receive Date: 20210824
  Receipt Date: 20210824
  Transmission Date: 20211014
  Serious: Yes (Hospitalization, Other)
  Sender: FDA-Public Use
  Company Number: NO-NALPROPION PHARMACEUTICALS INC.-2021-013819

PATIENT

DRUGS (7)
  1. MYSIMBA (NALTREXONE HCL/BUPROPION HCL) PROLONGED?RELEASE TABLETS [Suspect]
     Active Substance: BUPROPION HYDROCHLORIDE\NALTREXONE HYDROCHLORIDE
     Indication: OBESITY
     Dosage: STRENGTH: 90/8 MG, UNKNOWN DOSE AND FREQUENCY
     Route: 048
     Dates: start: 201903, end: 202010
  2. CALCIUM [Concomitant]
     Active Substance: CALCIUM
     Indication: PRODUCT USED FOR UNKNOWN INDICATION
     Dosage: UNK
  3. VALTREX [Concomitant]
     Active Substance: VALACYCLOVIR HYDROCHLORIDE
     Indication: HERPES VIRUS INFECTION
     Dosage: 500 MG, QD
     Dates: start: 2020
  4. MYSIMBA (NALTREXONE HCL/BUPROPION HCL) PROLONGED?RELEASE TABLETS [Suspect]
     Active Substance: BUPROPION HYDROCHLORIDE\NALTREXONE HYDROCHLORIDE
     Dosage: STRENGTH: 90/8 MG, UNKNOWN DOSE AND FREQUENCY
     Route: 048
     Dates: start: 202105, end: 2021
  5. AERIUS (DESLORATADINE) [Concomitant]
     Active Substance: DESLORATADINE
     Indication: HYPERSENSITIVITY
     Dosage: 5 MG, QD
  6. MYSIMBA (NALTREXONE HCL/BUPROPION HCL) PROLONGED?RELEASE TABLETS [Suspect]
     Active Substance: BUPROPION HYDROCHLORIDE\NALTREXONE HYDROCHLORIDE
     Dosage: 2 TABLET DAILY
     Route: 048
     Dates: start: 2021, end: 20210801
  7. VITAMIN D                          /00107901/ [Concomitant]
     Active Substance: ERGOCALCIFEROL
     Indication: PRODUCT USED FOR UNKNOWN INDICATION
     Dosage: UNK

REACTIONS (2)
  - Epistaxis [Unknown]
  - Haemorrhagic diathesis [Recovering/Resolving]

NARRATIVE: CASE EVENT DATE: 201905
